FAERS Safety Report 4956409-0 (Version None)
Quarter: 2006Q1

REPORT INFORMATION
  Report Type: 
  Country: None (occurrence: None)
  Receive Date: 20060328
  Receipt Date: 20060328
  Transmission Date: 20060701
  Serious: Yes (Hospitalization)
  Sender: FDA-Public Use
  Company Number: None

PATIENT
  Age: 77 Year
  Sex: Female
  Weight: 45 kg

DRUGS (2)
  1. LIPITOR [Suspect]
     Indication: CORONARY ARTERY DISEASE
     Dosage: 10 MG QDAY PO
     Route: 048
  2. LIPITOR [Suspect]
     Indication: HYPERLIPIDAEMIA
     Dosage: 10 MG QDAY PO
     Route: 048

REACTIONS (3)
  - INFLUENZA [None]
  - RHABDOMYOLYSIS [None]
  - TRANSIENT ISCHAEMIC ATTACK [None]
